FAERS Safety Report 10908272 (Version 4)
Quarter: 2015Q3

REPORT INFORMATION
  Report Type: Report from Study
  Country: CO (occurrence: CO)
  Receive Date: 20150312
  Receipt Date: 20150826
  Transmission Date: 20151125
  Serious: Yes (Other)
  Sender: FDA-Public Use
  Company Number: CO-INCYTE CORPORATION-2015IN000870

PATIENT
  Sex: Male
  Weight: 56 kg

DRUGS (4)
  1. ASPIRINA INFANTIL [Concomitant]
     Dosage: 1 OT, QD
  2. JAKAFI [Suspect]
     Active Substance: RUXOLITINIB
     Indication: MYELOFIBROSIS
     Dosage: 5 MG, BID
     Route: 065
     Dates: start: 201501
  3. THALIDOMIDE [Concomitant]
     Active Substance: THALIDOMIDE
     Indication: PRODUCT USED FOR UNKNOWN INDICATION
     Dosage: 100 MG, QD
     Route: 065
  4. ASPIRINA INFANTIL [Concomitant]
     Indication: PRODUCT USED FOR UNKNOWN INDICATION
     Dosage: UNK
     Route: 065

REACTIONS (10)
  - Malaise [Recovering/Resolving]
  - White blood cell count increased [Recovering/Resolving]
  - Hepatosplenomegaly [Recovering/Resolving]
  - Red blood cell count increased [Recovering/Resolving]
  - Multi-organ disorder [Unknown]
  - Inflammation [Unknown]
  - Arthritis [Unknown]
  - Platelet count decreased [Recovering/Resolving]
  - Peripheral swelling [Recovering/Resolving]
  - Irritable bowel syndrome [Recovering/Resolving]
